FAERS Safety Report 11569156 (Version 2)
Quarter: 2015Q3

REPORT INFORMATION
  Report Type: Spontaneous
  Country: US (occurrence: US)
  Receive Date: 20150929
  Receipt Date: 20150929
  Transmission Date: 20151125
  Serious: Yes (Other)
  Sender: FDA-Public Use
  Company Number: US-APOTEX-2015AP012996

PATIENT
  Age: 21 Year
  Sex: Male

DRUGS (4)
  1. LISINOPRIL. [Suspect]
     Active Substance: LISINOPRIL
     Indication: FOCAL SEGMENTAL GLOMERULOSCLEROSIS
     Dosage: 20MG DAILY
     Route: 065
  2. PREDNISONE. [Concomitant]
     Active Substance: PREDNISONE
     Indication: FOCAL SEGMENTAL GLOMERULOSCLEROSIS
     Dosage: FOR 8 WEEKS FOLLWED BY A TAPER
     Route: 065
  3. LISINOPRIL. [Suspect]
     Active Substance: LISINOPRIL
     Dosage: 40MG DAILY (DOUBLED FROM 20 MG DAILY))
     Route: 065
  4. VALSARTAN. [Suspect]
     Active Substance: VALSARTAN
     Indication: FOCAL SEGMENTAL GLOMERULOSCLEROSIS
     Dosage: 160MG DAILY
     Route: 065

REACTIONS (3)
  - Bone marrow failure [Unknown]
  - Marrow hyperplasia [Unknown]
  - Anaemia [Recovered/Resolved]
